FAERS Safety Report 4824590-X (Version None)
Quarter: 2005Q4

REPORT INFORMATION
  Report Type: 
  Country: None (occurrence: None)
  Receive Date: 20051108
  Receipt Date: 20051024
  Transmission Date: 20060501
  Serious: Yes (Hospitalization, Congenital Anomaly)
  Sender: FDA-Public Use
  Company Number: AU_050808845

PATIENT
  Age: 1 Day
  Sex: Male
  Weight: 3 kg

DRUGS (3)
  1. PROZAC [Suspect]
     Dates: start: 20050101
  2. ERYTHROMYCIN [Concomitant]
  3. AMOXIL [Concomitant]

REACTIONS (9)
  - CONGENITAL ANOMALY [None]
  - DRUG EXPOSURE DURING PREGNANCY [None]
  - DRUG EXPOSURE VIA BREAST MILK [None]
  - DYSPNOEA [None]
  - FEEDING DISORDER OF INFANCY OR EARLY CHILDHOOD [None]
  - HYPOGLYCAEMIA NEONATAL [None]
  - LARYNGOMALACIA [None]
  - SLEEP APNOEA SYNDROME [None]
  - WEIGHT GAIN POOR [None]
